FAERS Safety Report 14114587 (Version 1)
Quarter: 2017Q4

REPORT INFORMATION
  Report Type: Spontaneous
  Country: JP (occurrence: JP)
  Receive Date: 20171023
  Receipt Date: 20171023
  Transmission Date: 20180321
  Serious: Yes (Other)
  Sender: FDA-Public Use
  Company Number: JP-PFIZER INC-2017384671

PATIENT
  Age: 72 Year
  Sex: Female

DRUGS (2)
  1. XALATAN [Suspect]
     Active Substance: LATANOPROST
     Indication: INTRAOCULAR PRESSURE INCREASED
     Dosage: 1 GTT, 1X/DAY (IN THE LEFT EYE)
     Route: 047
     Dates: start: 20141008, end: 20170612
  2. MUCOSTA [Suspect]
     Active Substance: REBAMIPIDE
     Indication: DRY EYE
     Dosage: 1 GTT, 4X/DAY (IN THE BOTH EYES)
     Route: 047
     Dates: start: 20160330, end: 20170612

REACTIONS (3)
  - Cataract [Recovering/Resolving]
  - Dry throat [Recovered/Resolved]
  - Condition aggravated [Recovering/Resolving]

NARRATIVE: CASE EVENT DATE: 20161221
